FAERS Safety Report 13638824 (Version 2)
Quarter: 2017Q2

REPORT INFORMATION
  Report Type: Spontaneous
  Country: US (occurrence: US)
  Receive Date: 20170609
  Receipt Date: 20170613
  Transmission Date: 20170830
  Serious: No
  Sender: FDA-Public Use
  Company Number: US-BAYER-2017-111062

PATIENT
  Sex: Female

DRUGS (2)
  1. FINACEA [Suspect]
     Active Substance: AZELAIC ACID
     Indication: ROSACEA
     Dosage: ABOUT 2 YEARS AGO
     Route: 061
  2. FINACEA [Suspect]
     Active Substance: AZELAIC ACID
     Indication: ACNE

REACTIONS (3)
  - Product use complaint [None]
  - Adverse event [None]
  - Drug ineffective [None]
